FAERS Safety Report 6414506-7 (Version None)
Quarter: 2009Q4

REPORT INFORMATION
  Report Type: 
  Country: None (occurrence: None)
  Receive Date: 20091026
  Receipt Date: 20091023
  Transmission Date: 20100525
  Serious: Yes (Other)
  Sender: FDA-Public Use
  Company Number: CH-WYE-G04702009

PATIENT
  Sex: Male

DRUGS (1)
  1. EFFEXOR [Suspect]
     Dosage: SINCE YEARS, ACTUAL DOSE 225 MG DAILY

REACTIONS (1)
  - ABNORMAL LOSS OF WEIGHT [None]
